FAERS Safety Report 19823420 (Version 1)
Quarter: 2021Q3

REPORT INFORMATION
  Report Type: Spontaneous
  Country: US (occurrence: US)
  Receive Date: 20210913
  Receipt Date: 20210913
  Transmission Date: 20211014
  Serious: No
  Sender: FDA-Public Use
  Company Number: US-SA-2021SA298186

PATIENT
  Sex: Male

DRUGS (4)
  1. QUINAPRIL. [Concomitant]
     Active Substance: QUINAPRIL
  2. VITAMINS NOS [Concomitant]
     Active Substance: VITAMINS
  3. DUPIXENT [Suspect]
     Active Substance: DUPILUMAB
     Dosage: 300 MG
     Route: 058
  4. PRAVASTATIN. [Concomitant]
     Active Substance: PRAVASTATIN

REACTIONS (2)
  - Unevaluable event [Unknown]
  - Product dose omission issue [Unknown]
